FAERS Safety Report 12221315 (Version 2)
Quarter: 2016Q3

REPORT INFORMATION
  Report Type: Spontaneous
  Country: US (occurrence: US)
  Receive Date: 20160330
  Receipt Date: 20160830
  Transmission Date: 20161109
  Serious: Yes (Other)
  Sender: FDA-Public Use
  Company Number: US-LUNDBECK-DKLU2011571

PATIENT
  Age: 54 Year
  Sex: Female

DRUGS (5)
  1. NITROFURANTOIN. [Concomitant]
     Active Substance: NITROFURANTOIN
     Indication: PRODUCT USED FOR UNKNOWN INDICATION
     Route: 065
  2. MYRBETRIQ [Concomitant]
     Active Substance: MIRABEGRON
     Indication: PRODUCT USED FOR UNKNOWN INDICATION
     Route: 065
  3. NORTHERA [Suspect]
     Active Substance: DROXIDOPA
     Indication: ORTHOSTATIC HYPOTENSION
     Route: 065
     Dates: start: 201401
  4. NORTHERA [Suspect]
     Active Substance: DROXIDOPA
     Route: 065
  5. NORTHERA [Suspect]
     Active Substance: DROXIDOPA
     Route: 065
     Dates: start: 201501

REACTIONS (10)
  - Hepatic steatosis [Unknown]
  - Syncope [Unknown]
  - Dizziness [Unknown]
  - Impaired gastric emptying [Not Recovered/Not Resolved]
  - Presyncope [Unknown]
  - Hypotension [Unknown]
  - Migraine [Unknown]
  - Feeling drunk [Unknown]
  - Nausea [Unknown]
  - Renal failure [Unknown]

NARRATIVE: CASE EVENT DATE: 20160229
